FAERS Safety Report 14019811 (Version 2)
Quarter: 2017Q4

REPORT INFORMATION
  Report Type: Spontaneous
  Country: AR (occurrence: AR)
  Receive Date: 20170928
  Receipt Date: 20171121
  Transmission Date: 20180321
  Serious: Yes (Hospitalization, Other)
  Sender: FDA-Public Use
  Company Number: AR-ELI_LILLY_AND_COMPANY-AR201709006433

PATIENT
  Weight: 1.9 kg

DRUGS (6)
  1. FOLIC ACID. [Concomitant]
     Active Substance: FOLIC ACID
     Indication: PRODUCT USED FOR UNKNOWN INDICATION
  2. HUMULIN N [Suspect]
     Active Substance: INSULIN HUMAN
     Indication: PRODUCT USED FOR UNKNOWN INDICATION
     Dosage: 12 U, UNKNOWN
     Route: 064
  3. HUMULIN N [Suspect]
     Active Substance: INSULIN HUMAN
     Dosage: 8 U, UNKNOWN
     Route: 064
  4. HUMULIN N [Suspect]
     Active Substance: INSULIN HUMAN
     Dosage: 8 U, UNKNOWN
     Route: 064
  5. FOLIC ACID. [Concomitant]
     Active Substance: FOLIC ACID
     Indication: PRODUCT USED FOR UNKNOWN INDICATION
  6. HUMULIN N [Suspect]
     Active Substance: INSULIN HUMAN
     Indication: PRODUCT USED FOR UNKNOWN INDICATION
     Dosage: 12 U, UNKNOWN
     Route: 064

REACTIONS (5)
  - Immature respiratory system [Unknown]
  - Premature baby [Unknown]
  - Haemolytic anaemia [Unknown]
  - Low birth weight baby [Unknown]
  - Foetal exposure during pregnancy [Unknown]
